FAERS Safety Report 4804995-3 (Version None)
Quarter: 2005Q4

REPORT INFORMATION
  Report Type: 
  Country: None (occurrence: None)
  Receive Date: 20051020
  Receipt Date: 20050831
  Transmission Date: 20060501
  Serious: Yes (Death)
  Sender: FDA-Public Use
  Company Number: US-ABBOTT-05P-163-0309999-00

PATIENT
  Sex: Female

DRUGS (1)
  1. SYNTHROID [Suspect]
     Indication: PRIMARY HYPOTHYROIDISM
     Route: 048

REACTIONS (2)
  - CARDIAC FAILURE CHRONIC [None]
  - LUNG DISORDER [None]
